FAERS Safety Report 13550181 (Version 3)
Quarter: 2017Q3

REPORT INFORMATION
  Report Type: Spontaneous
  Country: US (occurrence: US)
  Receive Date: 20170516
  Receipt Date: 20170901
  Transmission Date: 20171127
  Serious: Yes (Other)
  Sender: FDA-Public Use
  Company Number: US-BAYER-2017-087662

PATIENT
  Sex: Female

DRUGS (3)
  1. SKYLA [Suspect]
     Active Substance: LEVONORGESTREL
     Indication: CONTRACEPTION
  2. SKYLA [Suspect]
     Active Substance: LEVONORGESTREL
     Indication: MENORRHAGIA
     Dosage: 14 MCG/24HR, CONT
     Route: 015
     Dates: start: 20140401, end: 2017
  3. MIRENA [Suspect]
     Active Substance: LEVONORGESTREL
     Dosage: 20 MCG/24HR, CONT
     Route: 015
     Dates: start: 2017

REACTIONS (13)
  - Device physical property issue [None]
  - Uterine cyst [None]
  - Pain [None]
  - Abdominal pain lower [None]
  - Genital haemorrhage [None]
  - Loss of personal independence in daily activities [None]
  - Menorrhagia [None]
  - Ovarian cyst [None]
  - Urticaria [None]
  - Uterine leiomyoma [None]
  - Device use issue [None]
  - Weight loss poor [None]
  - Pain [None]

NARRATIVE: CASE EVENT DATE: 2017
